FAERS Safety Report 9160985 (Version 2)
Quarter: 2013Q1

REPORT INFORMATION
  Report Type: Spontaneous
  Country: US (occurrence: None)
  Receive Date: 20130215
  Receipt Date: 20130228
  Transmission Date: 20140127
  Serious: Yes (Hospitalization)
  Sender: FDA-Public Use
  Company Number: DKLU1088825

PATIENT
  Age: 33 Year
  Sex: Female

DRUGS (11)
  1. SABRIL [Suspect]
     Indication: PRODUCT USED FOR UNKNOWN INDICATION
     Dates: start: 20130102
  2. SABRIL [Suspect]
     Indication: EPILEPSY
     Dates: start: 20130102
  3. SABRIL [Suspect]
     Dates: start: 20130102
  4. ONFI [Concomitant]
  5. FELBATOL (FELBAMATE) [Concomitant]
  6. LAMOTRIGINE (LAMOTRIGINE) [Concomitant]
  7. VALPROIC ACID (VALPROIC ACID) [Concomitant]
  8. POTIGA (RETIGABINE) [Concomitant]
  9. BANZEL (RUFINAMIDE) [Concomitant]
  10. LAMICTAL (LAMOTRIGINE) [Concomitant]
  11. DEPAKOTE (VALPROATE SEMISODIUM) [Concomitant]

REACTIONS (2)
  - Renal disorder [None]
  - Hepatic infection [None]
